FAERS Safety Report 8858634 (Version 1)
Quarter: 2012Q4

REPORT INFORMATION
  Report Type: 
  Country: CA (occurrence: CA)
  Receive Date: 20121024
  Receipt Date: 20121024
  Transmission Date: 20130627
  Serious: Yes (Other)
  Sender: FDA-Public Use
  Company Number: CA-BAYER-2012-109626

PATIENT
  Age: 42 Year
  Sex: Female

DRUGS (4)
  1. BETASERON [Suspect]
     Indication: MULTIPLE SCLEROSIS
     Dosage: 250 ?g, QOD
     Route: 058
  2. INTERFERON BETA-1A [Suspect]
     Dosage: 44 ?g, UNK
     Route: 058
  3. ACETAMINOPHEN [Concomitant]
  4. ALERTEC [Concomitant]
     Indication: FATIGUE

REACTIONS (3)
  - Multiple sclerosis [None]
  - Autoimmune hepatitis [Recovering/Resolving]
  - Biliary cirrhosis primary [Recovering/Resolving]
